FAERS Safety Report 17068858 (Version 1)
Quarter: 2019Q4

REPORT INFORMATION
  Report Type: Report from Study
  Country: JP (occurrence: JP)
  Receive Date: 20191124
  Receipt Date: 20191124
  Transmission Date: 20200122
  Serious: Yes (Hospitalization)
  Sender: FDA-Public Use
  Company Number: JP-TEVA-2018-JP-992624

PATIENT
  Age: 56 Year
  Sex: Female
  Weight: 55.4 kg

DRUGS (5)
  1. FREMANEZUMAB [Suspect]
     Active Substance: FREMANEZUMAB
     Indication: MIGRAINE PROPHYLAXIS
     Route: 058
  2. GOSHUYUTO [Concomitant]
     Active Substance: HERBALS
  3. ZOMIG [Suspect]
     Active Substance: ZOLMITRIPTAN
     Indication: MIGRAINE
     Route: 048
     Dates: start: 20100120, end: 20181214
  4. IMIGRAN [Concomitant]
     Active Substance: SUMATRIPTAN SUCCINATE
     Indication: MIGRAINE
     Route: 048
     Dates: start: 20170401, end: 20181214
  5. ATENOLOL. [Concomitant]
     Active Substance: ATENOLOL
     Indication: HYPERTENSION
     Dosage: 50 MILLIGRAM DAILY; ONGOING
     Route: 048
     Dates: start: 20180926

REACTIONS (1)
  - Medication overuse headache [Recovered/Resolved]

NARRATIVE: CASE EVENT DATE: 20181215
